FAERS Safety Report 20192154 (Version 1)
Quarter: 2021Q4

REPORT INFORMATION
  Report Type: Other
  Country: CA (occurrence: None)
  Receive Date: 20211216
  Receipt Date: 20211216
  Transmission Date: 20220303
  Serious: Yes (Other)
  Sender: FDA-Public Use
  Company Number: CA-ROCHE-2975895

PATIENT

DRUGS (2)
  1. NERINETIDE [Suspect]
     Active Substance: NERINETIDE
     Indication: Ischaemic stroke
     Route: 042
  2. ALTEPLASE [Suspect]
     Active Substance: ALTEPLASE
     Indication: Ischaemic stroke
     Route: 042

REACTIONS (37)
  - Cerebral haemorrhage [Unknown]
  - General physical health deterioration [Unknown]
  - Failure to thrive [Unknown]
  - Seizure [Unknown]
  - Infarction [Unknown]
  - Device occlusion [Unknown]
  - Reocclusion [Unknown]
  - Cerebrovascular accident [Unknown]
  - Acute coronary syndrome [Unknown]
  - Chest pain [Unknown]
  - Pain [Unknown]
  - Peripheral ischaemia [Unknown]
  - Intestinal ischaemia [Unknown]
  - Retinal artery occlusion [Unknown]
  - Transient ischaemic attack [Unknown]
  - Cardiac arrest [Unknown]
  - Pneumonia [Unknown]
  - Pneumonia aspiration [Unknown]
  - Respiratory failure [Unknown]
  - Dysphagia [Unknown]
  - Deep vein thrombosis [Unknown]
  - Pulmonary embolism [Unknown]
  - Haemorrhage [Unknown]
  - Gastrointestinal haemorrhage [Unknown]
  - Anaemia [Unknown]
  - Cardiac failure congestive [Unknown]
  - Hypotension [Unknown]
  - Sepsis [Unknown]
  - Urinary tract infection [Unknown]
  - Infection [Unknown]
  - Injury [Unknown]
  - Acute kidney injury [Unknown]
  - Depression [Unknown]
  - Delirium [Unknown]
  - Encephalopathy [Unknown]
  - Stroke in evolution [Unknown]
  - Drug interaction [Unknown]
